FAERS Safety Report 10572305 (Version 2)
Quarter: 2015Q1

REPORT INFORMATION
  Report Type: Spontaneous
  Country: US (occurrence: US)
  Receive Date: 20141109
  Receipt Date: 20150204
  Transmission Date: 20150720
  Serious: Yes (Other)
  Sender: FDA-Public Use
  Company Number: US-PFIZER INC-2014306035

PATIENT
  Age: 43 Year
  Sex: Female
  Weight: 70 kg

DRUGS (1)
  1. PREMPRO [Suspect]
     Active Substance: ESTROGENS, CONJUGATED\MEDROXYPROGESTERONE ACETATE
     Indication: MENOPAUSAL SYMPTOMS
     Dosage: UNK
     Dates: start: 1996

REACTIONS (4)
  - Disease recurrence [Not Recovered/Not Resolved]
  - Metastases to lung [Unknown]
  - Pelvic floor muscle weakness [Unknown]
  - Bone sarcoma [Not Recovered/Not Resolved]

NARRATIVE: CASE EVENT DATE: 2005
